FAERS Safety Report 21037596 (Version 2)
Quarter: 2022Q3

REPORT INFORMATION
  Report Type: Spontaneous
  Country: US (occurrence: US)
  Receive Date: 20220704
  Receipt Date: 20220907
  Transmission Date: 20221027
  Serious: Yes (Congenital Anomaly, Other)
  Sender: FDA-Public Use
  Company Number: US-NOVARTISPH-NVSC2022US149528

PATIENT
  Sex: Male
  Weight: 3.04 kg

DRUGS (8)
  1. DIGOXIN [Suspect]
     Active Substance: DIGOXIN
     Indication: Foetal exposure during pregnancy
     Dosage: MATERNAL EXPOSURE DURING PREGNANCY: UNKNOWN
     Route: 064
  2. DIGOXIN [Suspect]
     Active Substance: DIGOXIN
     Dosage: MATERNAL EXPOSURE DURING PREGNANCY: 750 MCG DAILY DIVIDED
     Route: 064
  3. DIGOXIN [Suspect]
     Active Substance: DIGOXIN
     Dosage: MATERNAL EXPOSURE DURING PREGNANCY: GRADUALLY DECREASED
     Route: 064
  4. OSELTAMIVIR [Suspect]
     Active Substance: OSELTAMIVIR
     Indication: Foetal exposure during pregnancy
     Dosage: MATERNAL EXPOSURE DURING PREGNANCY: 75 MG TWICE DAILY
     Route: 064
  5. FLECAINIDE [Suspect]
     Active Substance: FLECAINIDE
     Indication: Foetal exposure during pregnancy
     Dosage: MATERNAL EXPOSURE DURING PREGNANCY: UNKNOWN
     Route: 064
  6. FLECAINIDE [Suspect]
     Active Substance: FLECAINIDE
     Dosage: MATERNAL EXPOSURE DURING PREGNANCY: 100 MG EVERY 8 HOURS
     Route: 064
  7. FLECAINIDE [Suspect]
     Active Substance: FLECAINIDE
     Dosage: MATERNAL EXPOSURE DURING PREGNANCY: GRADUALLY DECREASED
     Route: 064
  8. FLECAINIDE [Suspect]
     Active Substance: FLECAINIDE
     Dosage: MATERNAL EXPOSURE DURING PREGNANCY: 100 MG EVERY 8 HOURS
     Route: 064

REACTIONS (4)
  - Patent ductus arteriosus [Unknown]
  - Tachycardia foetal [Unknown]
  - Hydrops foetalis [Recovered/Resolved]
  - Foetal exposure during pregnancy [Unknown]
